FAERS Safety Report 7555908-5 (Version None)
Quarter: 2011Q2

REPORT INFORMATION
  Report Type: 
  Country: None (occurrence: None)
  Receive Date: 20110618
  Receipt Date: 20110412
  Transmission Date: 20111010
  Serious: Yes (Death, Hospitalization)
  Sender: FDA-Public Use
  Company Number: FR-BAYER-2011-032311

PATIENT
  Age: 87 Year
  Sex: Male

DRUGS (4)
  1. FLAGYL [Suspect]
     Indication: GASTROENTERITIS
     Dosage: 500 MG, TID
     Route: 048
     Dates: start: 20101226, end: 20101227
  2. CIPROFLOXACIN [Suspect]
     Indication: GASTROENTERITIS
     Dosage: 500 MG, BID
     Route: 048
     Dates: start: 20101226, end: 20101227
  3. CIPROFLOXACIN [Suspect]
     Indication: PNEUMONIA ASPIRATION
     Dosage: 200 MG, BID
     Route: 042
     Dates: start: 20101230
  4. FLAGYL [Suspect]
     Indication: PNEUMONIA ASPIRATION
     Dosage: UNK UNK, TID
     Route: 042
     Dates: start: 20101230

REACTIONS (4)
  - PAIN [None]
  - DEATH [None]
  - XEROSIS [None]
  - URTICARIA [None]
